FAERS Safety Report 15543327 (Version 1)
Quarter: 2018Q4

REPORT INFORMATION
  Report Type: Spontaneous
  Country: US (occurrence: US)
  Receive Date: 20181023
  Receipt Date: 20181023
  Transmission Date: 20190205
  Serious: No
  Sender: FDA-Public Use
  Company Number: US-PERRIGO-18US000437

PATIENT
  Age: 78 Year
  Sex: Female
  Weight: 45.35 kg

DRUGS (2)
  1. KIONEX [Suspect]
     Active Substance: SODIUM POLYSTYRENE SULFONATE
     Indication: BOWEL PREPARATION
     Dosage: 30 ML, WEEKLY
     Route: 048
     Dates: start: 201712, end: 201712
  2. KIONEX [Suspect]
     Active Substance: SODIUM POLYSTYRENE SULFONATE
     Dosage: 30 ML, QD
     Route: 048
     Dates: start: 20171228

REACTIONS (3)
  - Therapeutic response unexpected [Recovered/Resolved]
  - Drug effect decreased [Unknown]
  - Off label use [Unknown]

NARRATIVE: CASE EVENT DATE: 201612
